FAERS Safety Report 11816205 (Version 1)
Quarter: 2015Q4

REPORT INFORMATION
  Report Type: Spontaneous
  Country: US (occurrence: US)
  Receive Date: 20151209
  Receipt Date: 20151209
  Transmission Date: 20160305
  Serious: Yes (Death, Other)
  Sender: FDA-Public Use
  Company Number: US-EAGLE PHARMACEUTICALS, INC.-ELL201512-000277

PATIENT
  Age: 49 Year
  Sex: Male
  Weight: 195 kg

DRUGS (6)
  1. PROSTACYCLIN [Concomitant]
     Active Substance: EPOPROSTENOL
  2. RYANODEX [Suspect]
     Active Substance: DANTROLENE SODIUM
     Indication: HYPERTHERMIA MALIGNANT
     Route: 040
  3. RYANODEX [Suspect]
     Active Substance: DANTROLENE SODIUM
     Route: 040
  4. RYANODEX [Suspect]
     Active Substance: DANTROLENE SODIUM
     Route: 040
  5. RYANODEX [Suspect]
     Active Substance: DANTROLENE SODIUM
     Route: 040
  6. RYANODEX [Suspect]
     Active Substance: DANTROLENE SODIUM
     Route: 040

REACTIONS (3)
  - Drug effect incomplete [Unknown]
  - Disease progression [Fatal]
  - Hyperthermia malignant [Fatal]
